FAERS Safety Report 5210542-7 (Version None)
Quarter: 2007Q1

REPORT INFORMATION
  Report Type: 
  Country: None (occurrence: None)
  Receive Date: 20070117
  Receipt Date: 20070105
  Transmission Date: 20070707
  Serious: Yes (Other)
  Sender: FDA-Public Use
  Company Number: FR-AVENTIS-200710226EU

PATIENT
  Age: 48 Year
  Sex: Female

DRUGS (5)
  1. LASIX [Suspect]
     Dosage: DOSE: UNKNOWN DOSAGE
  2. ANTI-PARATHYROID HORMONES [Suspect]
     Indication: HYPERPARATHYROIDISM SECONDARY
     Dates: start: 20060701, end: 20061001
  3. SEVELAMER HYDROCHLORIDE [Concomitant]
  4. RABEPRAZOLE SODIUM [Concomitant]
  5. CALCIPRAT [Concomitant]

REACTIONS (3)
  - AMNESIA [None]
  - DIZZINESS [None]
  - RHABDOMYOLYSIS [None]
